FAERS Safety Report 14367001 (Version 1)
Quarter: 2018Q1

REPORT INFORMATION
  Report Type: Spontaneous
  Country: IT (occurrence: IT)
  Receive Date: 20180109
  Receipt Date: 20180109
  Transmission Date: 20180509
  Serious: Yes (Hospitalization)
  Sender: FDA-Public Use
  Company Number: IT-ASTRAZENECA-2018SE00964

PATIENT
  Age: 59 Year
  Sex: Female

DRUGS (5)
  1. FLUOXETINE HYDROCHLORIDE. [Suspect]
     Active Substance: FLUOXETINE HYDROCHLORIDE
     Route: 048
     Dates: start: 20171219, end: 20171219
  2. DISULFIRAM. [Suspect]
     Active Substance: DISULFIRAM
     Route: 065
     Dates: start: 20171219, end: 20171219
  3. LORAZEPAM. [Suspect]
     Active Substance: LORAZEPAM
     Route: 048
     Dates: start: 20171219, end: 20171219
  4. QUETIAPINE. [Suspect]
     Active Substance: QUETIAPINE
     Route: 048
     Dates: start: 20171219, end: 20171219
  5. PREGABALIN. [Suspect]
     Active Substance: PREGABALIN
     Route: 048
     Dates: start: 20171219, end: 20171219

REACTIONS (3)
  - Sopor [Recovering/Resolving]
  - Drug abuse [Recovering/Resolving]
  - Intentional self-injury [Recovering/Resolving]

NARRATIVE: CASE EVENT DATE: 20171219
